FAERS Safety Report 4652269-6 (Version None)
Quarter: 2005Q2

REPORT INFORMATION
  Report Type: 
  Country: None (occurrence: None)
  Receive Date: 20050502
  Receipt Date: 20050425
  Transmission Date: 20051028
  Serious: Yes (Disabling, Other)
  Sender: FDA-Public Use
  Company Number: 200211737BWH

PATIENT
  Age: 75 Year
  Sex: Female
  Weight: 85.7298 kg

DRUGS (3)
  1. CIPRO [Suspect]
     Indication: CYSTITIS
     Dosage: 250 MG, BID, ORAL
     Route: 048
     Dates: start: 20010303, end: 20010301
  2. CIPRO [Suspect]
     Indication: URINARY TRACT INFECTION
     Dosage: 250 MG, BID, ORAL
     Route: 048
     Dates: start: 20010303, end: 20010301
  3. LEVOTHROID [Concomitant]

REACTIONS (20)
  - ARTHRALGIA [None]
  - ARTHRITIS [None]
  - BACK PAIN [None]
  - BLADDER DISORDER [None]
  - BONE PAIN [None]
  - DEPRESSION [None]
  - DIFFICULTY IN WALKING [None]
  - DRUG INEFFECTIVE [None]
  - ERYTHEMA [None]
  - FORMICATION [None]
  - IMPAIRED DRIVING ABILITY [None]
  - JOINT INJURY [None]
  - JOINT SWELLING [None]
  - NEUROPATHY [None]
  - OEDEMA PERIPHERAL [None]
  - SKIN ODOUR ABNORMAL [None]
  - THYROID DISORDER [None]
  - TREMOR [None]
  - VASODILATATION [None]
  - VISION BLURRED [None]
